FAERS Safety Report 17311715 (Version 1)
Quarter: 2020Q1

REPORT INFORMATION
  Report Type: Spontaneous
  Country: US (occurrence: US)
  Receive Date: 20200123
  Receipt Date: 20200123
  Transmission Date: 20200409
  Serious: Yes (Other)
  Sender: FDA-Public Use
  Company Number: US-ROCHE-2443024

PATIENT
  Age: 85 Year
  Sex: Male

DRUGS (8)
  1. PEMBROLIZUMAB. [Suspect]
     Active Substance: PEMBROLIZUMAB
     Indication: DIFFUSE LARGE B-CELL LYMPHOMA
     Dosage: EVERY 3 WEEKS FOR TWO CYCLES
     Route: 065
     Dates: start: 2019
  2. VINCRISTINE [Concomitant]
     Active Substance: VINCRISTINE
  3. RITUXIMAB. [Suspect]
     Active Substance: RITUXIMAB
     Indication: DIFFUSE LARGE B-CELL LYMPHOMA
     Dosage: EVERY 3 WEEKS FOR TWO CYCLES
     Route: 065
     Dates: start: 2017
  4. RITUXIMAB. [Suspect]
     Active Substance: RITUXIMAB
     Route: 065
     Dates: start: 2019
  5. LENALIDOMIDE [Suspect]
     Active Substance: LENALIDOMIDE
     Indication: DIFFUSE LARGE B-CELL LYMPHOMA
     Dosage: DAYS 1-21?EVERY 3 WEEKS FOR TWO CYCLES
     Route: 065
     Dates: start: 2019
  6. CYCLOPHOSPHAMIDE. [Concomitant]
     Active Substance: CYCLOPHOSPHAMIDE
  7. GEMCITABINE. [Concomitant]
     Active Substance: GEMCITABINE
  8. PREDNISONE. [Concomitant]
     Active Substance: PREDNISONE

REACTIONS (3)
  - Neutropenia [Recovered/Resolved]
  - Pneumonia viral [Unknown]
  - Pneumonia [Recovered/Resolved]
